FAERS Safety Report 4325514-4 (Version None)
Quarter: 2004Q1

REPORT INFORMATION
  Report Type: 
  Country: None (occurrence: None)
  Receive Date: 20040324
  Receipt Date: 20040310
  Transmission Date: 20041129
  Serious: Yes (Death)
  Sender: FDA-Public Use
  Company Number: USA040361707

PATIENT
  Age: 80 Year
  Sex: Female

DRUGS (5)
  1. ZYPREXA [Suspect]
     Indication: AGITATION
     Dosage: 10 MG DAY
     Dates: start: 20040301
  2. ZYPREXA [Suspect]
     Indication: IRRITABILITY
     Dosage: 10 MG DAY
     Dates: start: 20040301
  3. ELAVIL [Concomitant]
  4. REMERON [Concomitant]
  5. LIBRAX [Concomitant]

REACTIONS (7)
  - ABDOMINAL RIGIDITY [None]
  - BLOOD CREATINE PHOSPHOKINASE INCREASED [None]
  - FEELING JITTERY [None]
  - INTESTINAL ISCHAEMIA [None]
  - MUSCLE RIGIDITY [None]
  - NEUROLEPTIC MALIGNANT SYNDROME [None]
  - PAIN [None]
